FAERS Safety Report 8572367-4 (Version None)
Quarter: 2012Q3

REPORT INFORMATION
  Report Type: 
  Country: None (occurrence: None)
  Receive Date: 20120806
  Receipt Date: 20120730
  Transmission Date: 20120928
  Serious: Yes (Life-Threatening, Hospitalization)
  Sender: FDA-Public Use
  Company Number: ES-ROCHE-1051293

PATIENT
  Sex: Male
  Weight: 69 kg

DRUGS (5)
  1. COPEGUS [Suspect]
     Indication: HEPATITIS C
     Route: 048
     Dates: start: 20111116, end: 20120308
  2. BI 201335 (HCV PROTEASE INHIBITOR) [Suspect]
     Indication: HEPATITIS C
     Route: 048
     Dates: start: 20111116, end: 20120308
  3. PEGASYS [Suspect]
     Indication: HEPATITIS C
     Route: 030
     Dates: start: 20111116, end: 20120308
  4. ENALAPRIL MALEATE [Concomitant]
     Indication: HYPERTENSION
     Route: 048
  5. SIMVASTATIN [Concomitant]
     Indication: HYPERTENSION
     Route: 048

REACTIONS (4)
  - CHOLELITHIASIS [None]
  - PANCREATITIS [None]
  - PLATELET COUNT DECREASED [None]
  - LEUKOPENIA [None]
